FAERS Safety Report 16972625 (Version 1)
Quarter: 2019Q4

REPORT INFORMATION
  Report Type: Spontaneous
  Country: CA (occurrence: CA)
  Receive Date: 20191030
  Receipt Date: 20191030
  Transmission Date: 20200122
  Serious: Yes (Death, Other)
  Sender: FDA-Public Use
  Company Number: CA-AUROBINDO-AUR-APL-2019-069291

PATIENT
  Age: 77 Year
  Sex: Male
  Weight: 72.5 kg

DRUGS (2)
  1. VALSARTAN. [Suspect]
     Active Substance: VALSARTAN
     Indication: CARDIAC DISORDER
     Dosage: 80 MILLIGRAM, ONCE A DAY
     Route: 048
  2. VALSARTAN. [Suspect]
     Active Substance: VALSARTAN
     Indication: BLOOD PRESSURE MANAGEMENT

REACTIONS (7)
  - Respiratory arrest [Fatal]
  - Mydriasis [Fatal]
  - Myocardial infarction [Fatal]
  - Fatigue [Fatal]
  - Gait disturbance [Fatal]
  - Cyanosis [Fatal]
  - Pulse absent [Fatal]
